FAERS Safety Report 9080696 (Version 1)
Quarter: 2013Q1

REPORT INFORMATION
  Report Type: Spontaneous
  Country: US (occurrence: US)
  Receive Date: 20130130
  Receipt Date: 20130130
  Transmission Date: 20140127
  Serious: No
  Sender: FDA-Public Use
  Company Number: US-ABBOTT-12P-163-0969910-00

PATIENT
  Age: 61 Year
  Sex: Female
  Weight: 122.58 kg

DRUGS (15)
  1. HUMIRA 40 MG/0.8 ML PEN [Suspect]
     Indication: PSORIASIS
     Route: 058
     Dates: start: 20120816
  2. HUMIRA 40 MG/0.8 ML PEN [Suspect]
     Indication: PSORIATIC ARTHROPATHY
  3. AMITRIPTYLINE [Concomitant]
     Indication: PRODUCT USED FOR UNKNOWN INDICATION
  4. NAG-OXIDE [Concomitant]
     Indication: PRODUCT USED FOR UNKNOWN INDICATION
  5. LOSARTAN [Concomitant]
     Indication: PRODUCT USED FOR UNKNOWN INDICATION
  6. VITAMIN B1 [Concomitant]
     Indication: PRODUCT USED FOR UNKNOWN INDICATION
  7. LOVASTATIN [Concomitant]
     Indication: PRODUCT USED FOR UNKNOWN INDICATION
  8. FOLIC ACID [Concomitant]
     Indication: PRODUCT USED FOR UNKNOWN INDICATION
  9. LORAZEPAM [Concomitant]
     Indication: PRODUCT USED FOR UNKNOWN INDICATION
  10. POTASSIUM [Concomitant]
     Indication: PRODUCT USED FOR UNKNOWN INDICATION
  11. PANTOPRAZOLE [Concomitant]
     Indication: PRODUCT USED FOR UNKNOWN INDICATION
  12. VITAMIN D [Concomitant]
     Indication: PRODUCT USED FOR UNKNOWN INDICATION
  13. AZESTALINE [Concomitant]
     Indication: PRODUCT USED FOR UNKNOWN INDICATION
  14. EXTROVEN [Concomitant]
     Indication: PRODUCT USED FOR UNKNOWN INDICATION
  15. CLOBETAZOLE [Concomitant]
     Indication: PRODUCT USED FOR UNKNOWN INDICATION
     Dosage: APPLY TO FEET

REACTIONS (1)
  - Injection site haemorrhage [Recovered/Resolved]
